FAERS Safety Report 6476075-5 (Version None)
Quarter: 2009Q4

REPORT INFORMATION
  Report Type: 
  Country: None (occurrence: None)
  Receive Date: 20091204
  Receipt Date: 20091008
  Transmission Date: 20100525
  Serious: Yes (Life-Threatening)
  Sender: FDA-Public Use
  Company Number: US-GENENTECH-290493

PATIENT
  Sex: Female
  Weight: 65.8 kg

DRUGS (22)
  1. XOLAIR [Suspect]
     Indication: ASTHMA
     Dosage: 300 MG, UNK
     Route: 058
     Dates: start: 20070517
  2. XOLAIR [Suspect]
     Indication: HYPERSENSITIVITY
  3. SPIRIVA [Concomitant]
     Indication: ASTHMA
     Dosage: UNK
     Route: 048
  4. SPIRIVA [Concomitant]
     Indication: HYPERSENSITIVITY
  5. FORADIL [Concomitant]
     Indication: ASTHMA
     Dosage: 1 TABLET, BID
     Route: 048
  6. FORADIL [Concomitant]
     Indication: HYPERSENSITIVITY
  7. LEXAPRO [Concomitant]
     Indication: ANXIETY
     Dosage: 20 MG, QD
     Route: 048
  8. AMBIEN [Concomitant]
     Indication: ANXIETY
     Dosage: 10 MG, QHS
  9. ALPRAZOLAM [Concomitant]
     Indication: HYPERSENSITIVITY
     Dosage: 0.25 MG, BID
     Route: 048
  10. ALPRAZOLAM [Concomitant]
     Indication: ASTHMA
  11. ALBUTEROL [Concomitant]
     Indication: HYPERSENSITIVITY
     Dosage: UNK
  12. ALBUTEROL [Concomitant]
     Indication: ASTHMA
  13. SINGULAIR [Concomitant]
     Indication: HYPERSENSITIVITY
     Dosage: UNK
     Route: 048
  14. SINGULAIR [Concomitant]
     Indication: ASTHMA
  15. ASMANEX TWISTHALER [Concomitant]
     Indication: HYPERSENSITIVITY
     Dosage: 2 PUFF, BID
  16. ASMANEX TWISTHALER [Concomitant]
     Indication: ASTHMA
  17. FLOVENT [Concomitant]
     Indication: HYPERSENSITIVITY
  18. FLOVENT [Concomitant]
     Indication: ASTHMA
  19. LORATADINE [Concomitant]
     Indication: ASTHMA
     Dosage: 10 MG, QD
     Route: 048
  20. LORATADINE [Concomitant]
     Indication: HYPERSENSITIVITY
  21. TRIAZOLAM [Concomitant]
     Indication: HYPERSENSITIVITY
     Dosage: UNK
     Route: 048
  22. TRIAZOLAM [Concomitant]
     Indication: ASTHMA

REACTIONS (7)
  - ANAPHYLACTIC REACTION [None]
  - DIZZINESS [None]
  - DYSPNOEA [None]
  - HYPERSENSITIVITY [None]
  - NAUSEA [None]
  - PHARYNGEAL OEDEMA [None]
  - SWOLLEN TONGUE [None]
